FAERS Safety Report 5455735-9 (Version None)
Quarter: 2007Q3

REPORT INFORMATION
  Report Type: 
  Country: None (occurrence: None)
  Receive Date: 20070914
  Receipt Date: 20070905
  Transmission Date: 20080115
  Serious: Yes (Death)
  Sender: FDA-Public Use
  Company Number: 07H-163-0313155-00

PATIENT
  Age: 18 Year
  Sex: Male

DRUGS (3)
  1. PROPOFOL [Suspect]
     Indication: SEDATIVE THERAPY
     Dosage: INC DOSE MAX OF 7.5 MG/KG/H, INFUSION
  2. MORPHINE [Concomitant]
  3. VASOPRESSOR [Concomitant]

REACTIONS (6)
  - ANURIA [None]
  - ARRHYTHMIA [None]
  - CIRCULATORY COLLAPSE [None]
  - METABOLIC ACIDOSIS [None]
  - PROPOFOL INFUSION SYNDROME [None]
  - RHABDOMYOLYSIS [None]
